FAERS Safety Report 20351015 (Version 2)
Quarter: 2022Q2

REPORT INFORMATION
  Report Type: Report from Study
  Country: JP (occurrence: JP)
  Receive Date: 20220119
  Receipt Date: 20220617
  Transmission Date: 20220721
  Serious: Yes (Other)
  Sender: FDA-Public Use
  Company Number: JP-MSD-M2021-20789

PATIENT
  Age: 71 Year
  Sex: Female
  Weight: 49 kg

DRUGS (3)
  1. PEMBROLIZUMAB [Suspect]
     Active Substance: PEMBROLIZUMAB
     Indication: Renal cell carcinoma stage IV
     Dosage: 200 MILLIGRAM, Q3W
     Route: 041
     Dates: start: 20210729, end: 20211224
  2. PEMBROLIZUMAB [Suspect]
     Active Substance: PEMBROLIZUMAB
     Dosage: 400 MILLIGRAM, EVERY 6 WEEKS
     Route: 041
     Dates: start: 20220114
  3. INLYTA [Suspect]
     Active Substance: AXITINIB
     Indication: Renal cell carcinoma stage IV
     Dosage: 5 MILLIGRAM, BID
     Route: 048
     Dates: start: 20210729, end: 20220610

REACTIONS (4)
  - Basedow^s disease [Recovered/Resolved]
  - Oesophageal stenosis [Not Recovered/Not Resolved]
  - Hypertension [Unknown]
  - Off label use [Unknown]

NARRATIVE: CASE EVENT DATE: 20210101
